FAERS Safety Report 5576990-0 (Version None)
Quarter: 2007Q4

REPORT INFORMATION
  Report Type: 
  Country: None (occurrence: None)
  Receive Date: 20071130
  Receipt Date: 20070720
  Transmission Date: 20080405
  Serious: No
  Sender: FDA-Public Use
  Company Number: US200707006832

PATIENT
  Age: 51 Year
  Sex: Male

DRUGS (7)
  1. BYETTA [Suspect]
     Indication: TYPE 2 DIABETES MELLITUS
     Dosage: 5 UG, 2/D, SUBCUTANEOUS, 10 UG, 2/D, SUBCUTANEOUS
     Route: 058
     Dates: start: 20070101, end: 20070401
  2. BYETTA [Suspect]
     Indication: TYPE 2 DIABETES MELLITUS
     Dosage: 5 UG, 2/D, SUBCUTANEOUS, 10 UG, 2/D, SUBCUTANEOUS
     Route: 058
     Dates: start: 20070421, end: 20070401
  3. BYETTA [Suspect]
     Indication: TYPE 2 DIABETES MELLITUS
     Dosage: 5 UG, 2/D, SUBCUTANEOUS, 10 UG, 2/D, SUBCUTANEOUS
     Route: 058
     Dates: start: 20070630
  4. ACTOS [Concomitant]
  5. GLYBURIDE [Concomitant]
  6. METFORMIN HCL [Concomitant]
  7. HYDROCHLOROTHIAZIDE [Concomitant]

REACTIONS (10)
  - APPLICATION SITE ODOUR [None]
  - ASTHENIA [None]
  - BLOODY DISCHARGE [None]
  - FUNGAL INFECTION [None]
  - HYPOGLYCAEMIA [None]
  - NAUSEA [None]
  - PARAESTHESIA [None]
  - PRURITUS GENERALISED [None]
  - SKIN INFECTION [None]
  - TREMOR [None]
